FAERS Safety Report 9261507 (Version 2)
Quarter: 2013Q2

REPORT INFORMATION
  Report Type: Report from Study
  Country: DE (occurrence: DE)
  Receive Date: 20130429
  Receipt Date: 20130508
  Transmission Date: 20140414
  Serious: Yes (Hospitalization)
  Sender: FDA-Public Use
  Company Number: PHHY2013DE040319

PATIENT
  Age: 77 Year
  Sex: Male
  Weight: 85 kg

DRUGS (10)
  1. SANDOSTATIN LAR [Suspect]
     Dosage: UNK UKN, UNK
  2. AMLODIPINE [Concomitant]
     Dosage: 2.5 MG, QD
     Route: 048
  3. CAPTOHEXAL [Concomitant]
     Dosage: 50 MG, QD
     Route: 048
  4. ASS 100 [Concomitant]
     Dosage: 100 MG, QD
     Route: 048
  5. BELOC-ZOC MITE [Concomitant]
     Dosage: 47.5 MG, QD
     Route: 048
  6. URSOFALK GR [Concomitant]
     Dosage: 250 MG, QD
     Route: 048
  7. TAMSULOSIN [Concomitant]
     Dosage: 0.4 MG, QD
     Route: 048
  8. ALLOPURINOL [Concomitant]
     Dosage: 300 MG, QD
     Route: 048
  9. SIMVASTATIN [Concomitant]
     Dosage: 20 MG, QD
     Route: 048
  10. CLOPIDOGREL [Concomitant]
     Dosage: 75 MG, QD
     Route: 048

REACTIONS (1)
  - Myocardial infarction [Recovering/Resolving]
